FAERS Safety Report 20885015 (Version 1)
Quarter: 2022Q2

REPORT INFORMATION
  Report Type: Report from Study
  Country: US (occurrence: US)
  Receive Date: 20220527
  Receipt Date: 20220527
  Transmission Date: 20220721
  Serious: Yes (Hospitalization, Other)
  Sender: FDA-Public Use
  Company Number: US-BIOGEN-2022BI01126266

PATIENT
  Age: 44 Year
  Sex: Female

DRUGS (1)
  1. TYSABRI [Suspect]
     Active Substance: NATALIZUMAB
     Indication: Multiple sclerosis
     Route: 065
     Dates: start: 20080522, end: 20150702

REACTIONS (7)
  - Oesophageal perforation [Recovered/Resolved]
  - Post procedural sepsis [Recovered/Resolved]
  - Gastrooesophageal reflux disease [Unknown]
  - Feeding disorder [Recovered/Resolved]
  - Hypophagia [Recovered/Resolved]
  - Post procedural complication [Recovered/Resolved]
  - Post procedural pneumonia [Recovered/Resolved]

NARRATIVE: CASE EVENT DATE: 20141001
